FAERS Safety Report 7357106-7 (Version None)
Quarter: 2011Q1

REPORT INFORMATION
  Report Type: 
  Country: None (occurrence: None)
  Receive Date: 20110317
  Receipt Date: 20101216
  Transmission Date: 20110831
  Serious: Yes (Hospitalization, Other)
  Sender: FDA-Public Use
  Company Number: US-BAYER-201018951NA

PATIENT
  Sex: Female
  Weight: 76.19 kg

DRUGS (10)
  1. CIPROFLOXACIN [Concomitant]
  2. YAZ [Suspect]
     Indication: MENSTRUATION IRREGULAR
     Route: 048
     Dates: start: 20070401, end: 20070901
  3. OCELLA [Suspect]
     Indication: MENSTRUATION IRREGULAR
     Route: 048
     Dates: start: 20080801, end: 20090701
  4. REGLAN [Concomitant]
  5. NEXIUM [Concomitant]
  6. DIFLUCAN [Concomitant]
  7. CODEINE [Concomitant]
  8. YASMIN [Suspect]
     Indication: MENSTRUAL DISORDER
     Dosage: UNK UNK, UNK
     Route: 048
     Dates: start: 20040401, end: 20090101
  9. YASMIN [Suspect]
     Route: 048
     Dates: start: 20080201, end: 20080801
  10. PROTONIX [Concomitant]

REACTIONS (3)
  - GALLBLADDER DISORDER [None]
  - CHOLECYSTITIS CHRONIC [None]
  - ABDOMINAL PAIN UPPER [None]
